FAERS Safety Report 17724558 (Version 3)
Quarter: 2020Q2

REPORT INFORMATION
  Report Type: Spontaneous
  Country: FR (occurrence: FR)
  Receive Date: 20200429
  Receipt Date: 20200602
  Transmission Date: 20200714
  Serious: Yes (Death)
  Sender: FDA-Public Use
  Company Number: NVSC2020FR022805

PATIENT
  Age: 75 Year
  Sex: Female
  Weight: 70 kg

DRUGS (10)
  1. LETROZOLE. [Suspect]
     Active Substance: LETROZOLE
     Indication: BREAST CANCER
     Dosage: 2.5 MG, QD
     Route: 065
     Dates: start: 20191014, end: 20191107
  2. IBRANCE [Suspect]
     Active Substance: PALBOCICLIB
     Dosage: 125 MG, QD
     Route: 065
     Dates: start: 20191014, end: 20191107
  3. SEROPLEX [Concomitant]
     Active Substance: ESCITALOPRAM OXALATE
     Indication: DEPRESSION
     Dosage: UNK
     Route: 048
     Dates: start: 20190814
  4. OROCAL [Concomitant]
     Indication: PROPHYLAXIS
     Dosage: UNK
     Route: 048
     Dates: start: 20190911
  5. DENOSUMAB [Concomitant]
     Active Substance: DENOSUMAB
     Indication: METASTASES TO BONE
     Dosage: UNK
     Route: 058
     Dates: start: 20190911
  6. TEMESTA [Concomitant]
     Indication: DEPRESSION
     Dosage: UNK
     Route: 048
     Dates: start: 20190710
  7. FULVESTRANT. [Suspect]
     Active Substance: FULVESTRANT
     Indication: PRODUCT USED FOR UNKNOWN INDICATION
     Dosage: 500 MG, QMO
     Route: 065
     Dates: start: 20190411
  8. IBRANCE [Suspect]
     Active Substance: PALBOCICLIB
     Indication: BREAST CANCER
     Dosage: 125 MG, QD
     Route: 065
     Dates: start: 20190411, end: 20190827
  9. IBRANCE [Suspect]
     Active Substance: PALBOCICLIB
     Dosage: 125 MG, QD
     Route: 065
     Dates: start: 20191230
  10. IBRANCE [Suspect]
     Active Substance: PALBOCICLIB
     Dosage: 125 MG, QD
     Route: 065
     Dates: start: 20190903, end: 20191216

REACTIONS (13)
  - Neutropenia [Recovering/Resolving]
  - Neutropenia [Recovered/Resolved]
  - Cough [Recovered/Resolved]
  - Fatigue [Not Recovered/Not Resolved]
  - Pyrexia [Not Recovered/Not Resolved]
  - Neutropenia [Recovered/Resolved]
  - Neutropenia [Not Recovered/Not Resolved]
  - Neutropenia [Not Recovered/Not Resolved]
  - Neutropenia [Recovered/Resolved]
  - Pleural effusion [Fatal]
  - Neutropenia [Not Recovered/Not Resolved]
  - Pneumonia [Fatal]
  - Neutropenia [Not Recovered/Not Resolved]

NARRATIVE: CASE EVENT DATE: 20190604
